FAERS Safety Report 4684925-8 (Version None)
Quarter: 2005Q2

REPORT INFORMATION
  Report Type: 
  Country: None (occurrence: None)
  Receive Date: 20050606
  Receipt Date: 20050606
  Transmission Date: 20051028
  Serious: Yes (Life-Threatening)
  Sender: FDA-Public Use
  Company Number: None

PATIENT
  Age: 79 Year
  Sex: Female
  Weight: 78.0187 kg

DRUGS (6)
  1. COUMADIN [Suspect]
     Indication: AORTIC VALVE REPLACEMENT
     Dosage: 2.5 TO 7.5 MG DAILY
     Dates: start: 19960101
  2. DIOVAN HCT [Concomitant]
  3. EVISTA [Concomitant]
  4. LIPITOR [Concomitant]
  5. FLONASE [Concomitant]
  6. CELEBREX [Concomitant]

REACTIONS (1)
  - INTERNATIONAL NORMALISED RATIO DECREASED [None]
